FAERS Safety Report 23999173 (Version 1)
Quarter: 2024Q2

REPORT INFORMATION
  Report Type: Spontaneous
  Country: CN (occurrence: CN)
  Receive Date: 20240621
  Receipt Date: 20240621
  Transmission Date: 20240716
  Serious: Yes (Hospitalization)
  Sender: FDA-Public Use
  Company Number: CN-BAYER-2024A089115

PATIENT
  Age: 76 Year
  Sex: Male
  Weight: 66 kg

DRUGS (2)
  1. STIVARGA [Suspect]
     Active Substance: REGORAFENIB\REGORAFENIB MONOHYDRATE
     Indication: Hepatic cancer
     Dosage: 80 MG, QD
     Route: 048
     Dates: start: 20240605, end: 20240610
  2. STIVARGA [Suspect]
     Active Substance: REGORAFENIB\REGORAFENIB MONOHYDRATE
     Indication: Rectal cancer

REACTIONS (2)
  - Myelosuppression [Recovering/Resolving]
  - Off label use [None]

NARRATIVE: CASE EVENT DATE: 20240605
